FAERS Safety Report 9210531 (Version 1)
Quarter: 2013Q2

REPORT INFORMATION
  Report Type: Spontaneous
  Country: US (occurrence: US)
  Receive Date: 20130404
  Receipt Date: 20130404
  Transmission Date: 20140414
  Serious: No
  Sender: FDA-Public Use
  Company Number: US-PFIZER INC-2013103483

PATIENT
  Sex: Female

DRUGS (8)
  1. VANTIN [Suspect]
  2. FIORINAL [Suspect]
  3. CODEINE [Suspect]
     Dosage: UNK
  4. COUMADIN [Suspect]
     Dosage: UNK
  5. IMITREX [Suspect]
     Dosage: UNK
  6. OXYCONTIN [Suspect]
     Dosage: UNK
  7. MONISTAT [Suspect]
     Dosage: UNK
  8. BENADRYL [Suspect]
     Dosage: UNK
     Route: 048

REACTIONS (1)
  - Drug hypersensitivity [Unknown]
